FAERS Safety Report 5307535-8 (Version None)
Quarter: 2007Q2

REPORT INFORMATION
  Report Type: 
  Country: None (occurrence: None)
  Receive Date: 20070425
  Receipt Date: 20070416
  Transmission Date: 20071010
  Serious: Yes (Hospitalization)
  Sender: FDA-Public Use
  Company Number: FR-PFIZER INC-2007031915

PATIENT
  Age: 72 Year
  Sex: Female

DRUGS (4)
  1. ZYRTEC [Suspect]
     Indication: PRURITUS
     Dosage: TEXT:1 DF
     Route: 048
     Dates: start: 20061122, end: 20070123
  2. LEVETIRACETAM [Suspect]
     Indication: CONVULSION
     Dosage: TEXT:2 G
     Route: 048
     Dates: start: 20061026, end: 20070202
  3. VALPROIC ACID [Suspect]
     Dosage: DAILY DOSE:500MG
  4. CLONAZEPAM [Concomitant]

REACTIONS (1)
  - NEUTROPENIA [None]
